FAERS Safety Report 10967392 (Version 2)
Quarter: 2015Q3

REPORT INFORMATION
  Report Type: Report from Study
  Country: US (occurrence: US)
  Receive Date: 20150330
  Receipt Date: 20150930
  Transmission Date: 20151125
  Serious: Yes (Other)
  Sender: FDA-Public Use
  Company Number: US-SA-2014SA129816

PATIENT
  Age: 56 Year
  Sex: Female

DRUGS (3)
  1. AUBAGIO [Suspect]
     Active Substance: TERIFLUNOMIDE
     Indication: MULTIPLE SCLEROSIS
     Route: 048
     Dates: start: 20140919
  2. LORATADINE. [Concomitant]
     Active Substance: LORATADINE
  3. AUBAGIO [Suspect]
     Active Substance: TERIFLUNOMIDE
     Indication: MULTIPLE SCLEROSIS
     Route: 048
     Dates: start: 20140909, end: 20140917

REACTIONS (19)
  - Fatigue [Unknown]
  - Panic attack [Unknown]
  - Hyperhidrosis [Unknown]
  - Temperature intolerance [Unknown]
  - Pain of skin [Unknown]
  - Gait disturbance [Unknown]
  - Lumbar spinal stenosis [Not Recovered/Not Resolved]
  - Dyspnoea [Unknown]
  - Cough [Not Recovered/Not Resolved]
  - Pain in extremity [Unknown]
  - Asthenia [Unknown]
  - Abdominal pain upper [Unknown]
  - Sneezing [Not Recovered/Not Resolved]
  - Skin fissures [Unknown]
  - Nasopharyngitis [Unknown]
  - Head discomfort [Unknown]
  - Cough [Not Recovered/Not Resolved]
  - Dry skin [Unknown]
  - Rhinorrhoea [Unknown]

NARRATIVE: CASE EVENT DATE: 2014
